FAERS Safety Report 9845445 (Version 1)
Quarter: 2014Q1

REPORT INFORMATION
  Report Type: Spontaneous
  Country: US (occurrence: None)
  Receive Date: 20140122
  Receipt Date: 20140122
  Transmission Date: 20141002
  Serious: Yes (Death)
  Sender: FDA-Public Use
  Company Number: POI0573201400005

PATIENT
  Age: 57 Year
  Sex: Female

DRUGS (8)
  1. NIFEDIPINE EXTENDED-RELEASE TABLETS [Suspect]
     Route: 048
     Dates: start: 2012
  2. ATENOLOL [Suspect]
     Route: 048
     Dates: start: 2012
  3. EFAVIRENZ/EMTRICITABINE/TENOFOVIR [Suspect]
     Route: 048
     Dates: start: 2012
  4. SKELETAL MUSCLE RELAXANT [Suspect]
     Route: 048
     Dates: start: 2012
  5. DIPHENHYDRAMINE [Suspect]
     Route: 048
     Dates: start: 2012
  6. CLONIDINE [Suspect]
     Dates: start: 2012
  7. FUROSEMIDE [Suspect]
     Route: 048
     Dates: start: 2012
  8. ACETAMINOPHEN [Suspect]
     Route: 048
     Dates: start: 2012

REACTIONS (2)
  - Completed suicide [None]
  - Exposure via ingestion [None]
